FAERS Safety Report 7312078-6 (Version None)
Quarter: 2011Q1

REPORT INFORMATION
  Report Type: 
  Country: None (occurrence: None)
  Receive Date: 20110224
  Receipt Date: 20110125
  Transmission Date: 20110831
  Serious: Yes (Death)
  Sender: FDA-Public Use
  Company Number: US-TYCO HEALTHCARE/MALLINCKRODT-T201100252

PATIENT
  Age: 42 Year
  Sex: Female

DRUGS (7)
  1. DOXEPIN [Suspect]
     Route: 065
  2. OXYCODONE [Suspect]
     Route: 065
  3. BENZTROPINE MESYLATE [Suspect]
     Route: 065
  4. FLUDROCORTISONE [Suspect]
     Route: 065
  5. METHADOSE [Suspect]
     Route: 065
  6. CYCLOBENZAPRINE [Suspect]
     Route: 065
  7. DIPHENHYDRAMINE [Suspect]
     Route: 065

REACTIONS (1)
  - CARDIO-RESPIRATORY ARREST [None]
